FAERS Safety Report 5706442-6 (Version None)
Quarter: 2008Q2

REPORT INFORMATION
  Report Type: 
  Country: None (occurrence: None)
  Receive Date: 20080414
  Receipt Date: 20080403
  Transmission Date: 20081010
  Serious: Yes (Other)
  Sender: FDA-Public Use
  Company Number: 163-21880-08040701

PATIENT

DRUGS (1)
  1. REVLIMID [Suspect]
     Indication: CHRONIC LYMPHOCYTIC LEUKAEMIA
     Dosage: 10MG DAILY WITH DOSE ESCALATION UP TO 25MG DAILY., ORAL
     Route: 048

REACTIONS (12)
  - ANAEMIA [None]
  - CRYPTOSPORIDIOSIS INFECTION [None]
  - DEEP VEIN THROMBOSIS [None]
  - DIARRHOEA [None]
  - FATIGUE [None]
  - NEUTROPENIA [None]
  - PNEUMOCYSTIS JIROVECI PNEUMONIA [None]
  - PNEUMONIA [None]
  - PYREXIA [None]
  - ROTAVIRUS INFECTION [None]
  - THROMBOCYTOPENIA [None]
  - TUMOUR FLARE [None]
